FAERS Safety Report 6524517-9 (Version None)
Quarter: 2010Q1

REPORT INFORMATION
  Report Type: 
  Country: None (occurrence: None)
  Receive Date: 20100104
  Receipt Date: 20091223
  Transmission Date: 20100710
  Serious: Yes (Hospitalization)
  Sender: FDA-Public Use
  Company Number: GR-ROCHE-676531

PATIENT
  Sex: Female
  Weight: 65 kg

DRUGS (4)
  1. XENICAL [Suspect]
     Route: 048
     Dates: start: 20030101, end: 20070101
  2. XENICAL [Suspect]
     Dosage: DISCONTINUED FOR SOME DAYS IN DECEMBER 2008.
     Route: 048
     Dates: start: 20070101, end: 20081201
  3. XENICAL [Suspect]
     Route: 048
     Dates: start: 20081201, end: 20090901
  4. XENICAL [Suspect]
     Route: 048
     Dates: start: 20090901

REACTIONS (6)
  - ARRHYTHMIA [None]
  - CONSTIPATION [None]
  - DIZZINESS [None]
  - FALL [None]
  - INJURY [None]
  - WEIGHT INCREASED [None]
